FAERS Safety Report 5821861-5 (Version None)
Quarter: 2008Q3

REPORT INFORMATION
  Report Type: 
  Country: None (occurrence: None)
  Receive Date: 20080724
  Receipt Date: 20080717
  Transmission Date: 20090109
  Serious: Yes (Death, Disabling)
  Sender: FDA-Public Use
  Company Number: FI-ROCHE-576234

PATIENT
  Sex: Female

DRUGS (13)
  1. ROCEPHIN [Suspect]
     Indication: PNEUMONIA
     Dosage: FORM REPORTED AS INFUSION. DOSAGE REGIMEN: 2G X 1
     Route: 065
     Dates: start: 20080506, end: 20080508
  2. ZINACEF [Concomitant]
     Indication: PNEUMONIA
     Dosage: FORM REPORTED AS INFUSION. DOSAGE REGIMEN: 1.5G X 3
     Route: 042
     Dates: start: 20080502, end: 20080506
  3. PANTOPRAZOLE SODIUM [Concomitant]
     Dosage: DOSAGE REGIMEN: 40MG X 1
     Route: 048
     Dates: start: 20080325, end: 20080508
  4. CARDACE [Concomitant]
     Indication: HYPERTENSION
     Dosage: DRUG: RAMIPRIL+HYDROCHLOROTHIAZIDE/CARDACE DOSAGE REGIMEN: 10MG X 1
     Route: 048
     Dates: start: 20050510, end: 20080508
  5. KALINORM [Concomitant]
     Dosage: DOSAGE REGIMEN: 2 X 2
     Route: 048
     Dates: start: 20080506
  6. DIGOXIN MITE [Concomitant]
     Dosage: TDD: 0.0625 MG
     Route: 048
     Dates: start: 20040910
  7. ISOSORBIDE MONONITRATE [Concomitant]
     Dosage: DRUG: ISOSORBIDE-5-MONONITRATE/ORMOX DOSAGE REGIMEN: 20MG X 1
     Route: 048
     Dates: start: 20040708
  8. FURESIS [Concomitant]
     Dosage: DOSAGE REGIMEN: 40MG X 1
     Route: 048
     Dates: start: 20070516
  9. EMCONCOR [Concomitant]
     Dosage: DRUG: BISOPROLOLFUMARATE/EMCONCOR DOSAGE REGIMEN: 2.5MG X 1
     Route: 048
     Dates: start: 20070522
  10. ACETYLSALICYLIC ACID SRT [Concomitant]
     Route: 048
     Dates: start: 20080302
  11. PLAVIX [Concomitant]
     Dosage: DRUG: CLOPIDOGREL BISULFATE/PLAVIX
     Route: 048
     Dates: start: 20080302
  12. UNKNOWN MEDICATION FOR PAIN [Concomitant]
  13. MAREVAN [Concomitant]
     Dosage: DRUG: WARFARIN NATRIUM/MAREVAN
     Route: 048

REACTIONS (3)
  - GENERAL PHYSICAL HEALTH DETERIORATION [None]
  - INFECTION [None]
  - PANCYTOPENIA [None]
